FAERS Safety Report 25561535 (Version 2)
Quarter: 2025Q3

REPORT INFORMATION
  Report Type: Report from Study
  Country: CA (occurrence: CA)
  Receive Date: 20250716
  Receipt Date: 20250813
  Transmission Date: 20251020
  Serious: Yes (Hospitalization)
  Sender: ALEXION PHARMACEUTICALS
  Company Number: CA-AstraZeneca-CH-00908345A

PATIENT
  Age: 59 Year

DRUGS (1)
  1. ANIFROLUMAB [Suspect]
     Active Substance: ANIFROLUMAB
     Indication: Systemic lupus erythematosus
     Dosage: 300 MILLIGRAM, Q4W
     Dates: start: 20250612

REACTIONS (4)
  - Peripheral venous disease [Not Recovered/Not Resolved]
  - Chest pain [Not Recovered/Not Resolved]
  - Myalgia [Recovered/Resolved]
  - Oedema peripheral [Not Recovered/Not Resolved]

NARRATIVE: CASE EVENT DATE: 20250614
